FAERS Safety Report 9536838 (Version 1)
Quarter: 2013Q3

REPORT INFORMATION
  Report Type: Report from Study
  Country: CO (occurrence: CO)
  Receive Date: 20130919
  Receipt Date: 20130919
  Transmission Date: 20140515
  Serious: Yes (Death)
  Sender: FDA-Public Use
  Company Number: CO-SANOFI-AVENTIS-2013SA091518

PATIENT
  Age: 58 Year
  Sex: Male

DRUGS (2)
  1. LANTUS [Suspect]
     Indication: DIABETES MELLITUS
     Dosage: DOSE:30 UNIT(S)
     Route: 058
     Dates: start: 2012, end: 20130605
  2. APIDRA [Suspect]
     Indication: DIABETES MELLITUS
     Dosage: DOSE: 35 AM -15 PM -15 PM
     Route: 058
     Dates: start: 2012, end: 20130605

REACTIONS (1)
  - Diabetic foot [Fatal]
